FAERS Safety Report 23580597 (Version 1)
Quarter: 2024Q1

REPORT INFORMATION
  Report Type: Report from Study
  Country: US (occurrence: US)
  Receive Date: 20240229
  Receipt Date: 20240229
  Transmission Date: 20240410
  Serious: Yes (Death, Hospitalization, Other)
  Sender: FDA-Public Use
  Company Number: US-OTSUKA-2023_028486

PATIENT
  Age: 86 Year
  Sex: Male
  Weight: 58.97 kg

DRUGS (17)
  1. TOLVAPTAN [Suspect]
     Active Substance: TOLVAPTAN
     Indication: Hyponatraemia
     Dosage: TAKING 1/2 A 15 MG TABLET (QUANTITY OF 6)
     Route: 065
  2. TOLVAPTAN [Suspect]
     Active Substance: TOLVAPTAN
     Indication: Blood osmolarity decreased
     Dosage: 0.5 OF A TABLET EVERY TUESDAY, THURSDAY, AND SATURDAY
     Route: 065
  3. TOLVAPTAN [Suspect]
     Active Substance: TOLVAPTAN
     Dosage: 7.5 MG (TUESDAY, THURSDAY, SATURDAY)
     Route: 048
  4. ACETAMINOPHEN [Concomitant]
     Active Substance: ACETAMINOPHEN
     Indication: Pain
     Dosage: 650 MG (EVERY 6 HOURS/PRN)
     Route: 048
  5. ACYCLOVIR [Concomitant]
     Active Substance: ACYCLOVIR
     Indication: Product used for unknown indication
     Dosage: 400 MG, QD
     Route: 048
  6. ALLOPURINOL [Concomitant]
     Active Substance: ALLOPURINOL
     Indication: Product used for unknown indication
     Dosage: 300 MG, QD
     Route: 048
  7. ASPIRIN [Concomitant]
     Active Substance: ASPIRIN
     Indication: Product used for unknown indication
     Dosage: 81 MG, QD
     Route: 048
  8. CARVEDILOL [Concomitant]
     Active Substance: CARVEDILOL
     Indication: Product used for unknown indication
     Dosage: 3.125 MG, BID
     Route: 048
  9. ENOXAPARIN SODIUM [Concomitant]
     Active Substance: ENOXAPARIN SODIUM
     Indication: Product used for unknown indication
     Dosage: 40 MG, QD
     Route: 058
  10. FINASTERIDE [Concomitant]
     Active Substance: FINASTERIDE
     Indication: Product used for unknown indication
     Dosage: 5 MG, QD
     Route: 048
  11. FLUTICASONE FUROATE\UMECLIDINIUM BROMIDE\VILANTEROL TRIFENATATE [Concomitant]
     Active Substance: FLUTICASONE FUROATE\UMECLIDINIUM BROMIDE\VILANTEROL TRIFENATATE
     Indication: Product used for unknown indication
     Dosage: 1 INHALATION, QD (100-62.5-25 ELLIPTA)
     Route: 055
  12. MIDODRINE HYDROCHLORIDE [Concomitant]
     Active Substance: MIDODRINE HYDROCHLORIDE
     Indication: Product used for unknown indication
     Dosage: 10 MG, TID (EVERY 8 H)
     Route: 048
  13. VERICIGUAT [Concomitant]
     Active Substance: VERICIGUAT
     Indication: Product used for unknown indication
     Dosage: 1 DF, QD
     Route: 048
  14. PHENOL [Concomitant]
     Active Substance: PHENOL
     Indication: Oropharyngeal pain
     Dosage: 1 DF (EVERY 4 H/PRN)
     Route: 048
  15. SACUBITRIL\VALSARTAN [Concomitant]
     Active Substance: SACUBITRIL\VALSARTAN
     Indication: Product used for unknown indication
     Dosage: 1 DF, BID
     Route: 048
  16. SPIRONOLACTONE [Concomitant]
     Active Substance: SPIRONOLACTONE
     Indication: Product used for unknown indication
     Dosage: 25 MG, QD
     Route: 048
  17. TRAMADOL HCL [Concomitant]
     Active Substance: TRAMADOL HYDROCHLORIDE
     Indication: Pain
     Dosage: 50 MG (EVERY Q8H/PRN)
     Route: 048

REACTIONS (10)
  - Hypercalcaemia of malignancy [Unknown]
  - Syncope [Unknown]
  - Diffuse large B-cell lymphoma recurrent [Fatal]
  - Neoplasm malignant [Fatal]
  - Orthostatic hypotension [Unknown]
  - Product use issue [Not Recovered/Not Resolved]
  - Wrong technique in product usage process [Unknown]
  - Inappropriate schedule of product administration [Unknown]
  - Product use in unapproved indication [Unknown]
  - Ill-defined disorder [Unknown]

NARRATIVE: CASE EVENT DATE: 20231001
